FAERS Safety Report 8300587-2 (Version None)
Quarter: 2012Q2

REPORT INFORMATION
  Report Type: 
  Country: None (occurrence: None)
  Receive Date: 20120420
  Receipt Date: 20120410
  Transmission Date: 20120825
  Serious: Yes (Disabling, Other)
  Sender: FDA-Public Use
  Company Number: JP-CELGENEUS-087-21660-12033032

PATIENT
  Age: 70 Year
  Sex: Female
  Weight: 51 kg

DRUGS (7)
  1. ABRAXANE [Suspect]
     Indication: BREAST CANCER METASTATIC
     Dosage: 300 MILLIGRAM
     Route: 065
     Dates: start: 20120316, end: 20120316
  2. DECADRON [Concomitant]
     Indication: ANAPHYLAXIS PROPHYLAXIS
     Dosage: 20 MILLIGRAM
     Route: 041
     Dates: start: 20120316, end: 20120316
  3. SEROTONE [Concomitant]
     Dosage: 10 MILLIGRAM
     Route: 041
     Dates: start: 20120316, end: 20120316
  4. ZANTAC [Concomitant]
     Dosage: 50 MILLIGRAM
     Route: 041
     Dates: start: 20120316, end: 20120316
  5. MEDROXYPROGESTERONE ACETATE [Concomitant]
     Dosage: 400 MILLIGRAM
     Route: 048
     Dates: start: 20100226
  6. PREDNISOLONE [Concomitant]
     Indication: ANAPHYLAXIS PROPHYLAXIS
     Dosage: 30 MILLIGRAM
     Route: 048
     Dates: start: 20120315, end: 20120318
  7. TAKAVENSU [Concomitant]
     Indication: LYMPHOEDEMA
     Dosage: 75 MILLIGRAM
     Route: 048
     Dates: start: 20100423

REACTIONS (1)
  - MUSCULAR WEAKNESS [None]
